FAERS Safety Report 7709882-9 (Version None)
Quarter: 2011Q3

REPORT INFORMATION
  Report Type: 
  Country: None (occurrence: None)
  Receive Date: 20110825
  Receipt Date: 20110816
  Transmission Date: 20111222
  Serious: Yes (Other)
  Sender: FDA-Public Use
  Company Number: US-ACTELION-A-US2011-52480

PATIENT

DRUGS (1)
  1. ZAVESCA [Suspect]
     Indication: GAUCHER'S DISEASE
     Dosage: 100 MG, TID, 1 MONTH
     Route: 048

REACTIONS (5)
  - EPISTAXIS [None]
  - MYALGIA [None]
  - BALANCE DISORDER [None]
  - TREMOR [None]
  - MUSCLE SPASMS [None]
